FAERS Safety Report 4859525-7 (Version None)
Quarter: 2005Q4

REPORT INFORMATION
  Report Type: 
  Country: None (occurrence: None)
  Receive Date: 20051215
  Receipt Date: 20051129
  Transmission Date: 20060501
  Serious: Yes (Other)
  Sender: FDA-Public Use
  Company Number: 8013674

PATIENT
  Age: 45 Year
  Sex: Female

DRUGS (1)
  1. KEPPRA [Suspect]
     Indication: COMPLEX PARTIAL SEIZURES
     Dosage: PO
     Route: 048
     Dates: start: 20050101, end: 20050101

REACTIONS (1)
  - THROMBOCYTOPENIA [None]
